FAERS Safety Report 8621608-3 (Version None)
Quarter: 2012Q3

REPORT INFORMATION
  Report Type: 
  Country: None (occurrence: None)
  Receive Date: 20120820
  Receipt Date: 20120820
  Transmission Date: 20120928
  Serious: Yes (Hospitalization, Disabling)
  Sender: FDA-Public Use
  Company Number: None

PATIENT
  Sex: Female
  Weight: 72 kg

DRUGS (1)
  1. APRI 0.15/0.03MG BARR LABORATORIES, INC [Suspect]
     Indication: CONTRACEPTION
     Dosage: 1 TABLET DAILY BY MOUTH
     Route: 048
     Dates: start: 20110401, end: 20110701

REACTIONS (1)
  - THROMBOTIC STROKE [None]
